FAERS Safety Report 12334670 (Version 3)
Quarter: 2016Q2

REPORT INFORMATION
  Report Type: Report from Study
  Country: US (occurrence: US)
  Receive Date: 20160504
  Receipt Date: 20160602
  Transmission Date: 20160815
  Serious: Yes (Hospitalization, Other)
  Sender: FDA-Public Use
  Company Number: US-GILEAD-2016-0210641

PATIENT
  Age: 83 Year
  Sex: Male
  Weight: 105.21 kg

DRUGS (12)
  1. POTASSIUM CHLORIDE. [Concomitant]
     Active Substance: POTASSIUM CHLORIDE
  2. NUTRA LIFE MILK THISTLE 12,000 COMPLEX [Concomitant]
  3. DILTIAZEM [Concomitant]
     Active Substance: DILTIAZEM
  4. FISH OIL [Concomitant]
     Active Substance: FISH OIL
  5. LEDIPASVIR/SOFOSBUVIR [Suspect]
     Active Substance: LEDIPASVIR\SOFOSBUVIR
     Indication: HEPATITIS C
     Dosage: 1 DF, QD
     Route: 048
     Dates: start: 20150624, end: 20151209
  6. MULTIVITAMIN                       /00097801/ [Concomitant]
     Active Substance: VITAMINS
  7. FINASTERIDE. [Concomitant]
     Active Substance: FINASTERIDE
  8. ASPIRIN                            /00002701/ [Concomitant]
     Active Substance: ASPIRIN
  9. GINGER                             /01646602/ [Concomitant]
  10. TRAMADOL. [Concomitant]
     Active Substance: TRAMADOL
  11. FUROSEMIDE. [Concomitant]
     Active Substance: FUROSEMIDE
  12. ENALAPRIL [Concomitant]
     Active Substance: ENALAPRIL

REACTIONS (1)
  - Gastrointestinal haemorrhage [Unknown]

NARRATIVE: CASE EVENT DATE: 20160126
